FAERS Safety Report 23909593 (Version 1)
Quarter: 2024Q2

REPORT INFORMATION
  Report Type: Spontaneous
  Country: US (occurrence: US)
  Receive Date: 20240528
  Receipt Date: 20240528
  Transmission Date: 20240715
  Serious: No
  Sender: FDA-Public Use
  Company Number: US-BAYER-2024A076253

PATIENT
  Age: 50 Year
  Sex: Female

DRUGS (2)
  1. CLARITIN REDITABS [Suspect]
     Active Substance: LORATADINE
     Indication: Hypersensitivity
     Dosage: 1 TABLET DAILY
     Route: 048
     Dates: start: 20240518, end: 20240522
  2. CLARITIN REDITABS [Suspect]
     Active Substance: LORATADINE
     Indication: Nasopharyngitis

REACTIONS (2)
  - Drug ineffective [Recovered/Resolved]
  - Expired product administered [None]

NARRATIVE: CASE EVENT DATE: 20240518
